FAERS Safety Report 16312620 (Version 1)
Quarter: 2019Q2

REPORT INFORMATION
  Report Type: Spontaneous
  Country: FR (occurrence: FR)
  Receive Date: 20190515
  Receipt Date: 20190515
  Transmission Date: 20190711
  Serious: Yes (Hospitalization)
  Sender: FDA-Public Use
  Company Number: FR-TEVA-2019-FR-1048245

PATIENT
  Age: 41 Year
  Sex: Male

DRUGS (2)
  1. BUPRENORPHINE. [Suspect]
     Active Substance: BUPRENORPHINE
     Route: 065
  2. SERESTA [Suspect]
     Active Substance: OXAZEPAM
     Route: 048

REACTIONS (1)
  - Psychiatric decompensation [Recovered/Resolved]

NARRATIVE: CASE EVENT DATE: 20171105
